FAERS Safety Report 19908140 (Version 1)
Quarter: 2021Q4

REPORT INFORMATION
  Report Type: Spontaneous
  Country: CA (occurrence: CA)
  Receive Date: 20211001
  Receipt Date: 20211001
  Transmission Date: 20220303
  Serious: Yes (Hospitalization, Other)
  Sender: FDA-Public Use
  Company Number: CA-TEVA-2021-CA-1959035

PATIENT
  Age: 93 Year
  Sex: Male

DRUGS (2)
  1. GLYBURIDE [Suspect]
     Active Substance: GLYBURIDE
     Route: 065
  2. METFORMIN [Concomitant]
     Active Substance: METFORMIN HYDROCHLORIDE

REACTIONS (2)
  - Depressed level of consciousness [Recovered/Resolved]
  - Hypoglycaemia [Recovered/Resolved]
